FAERS Safety Report 6124991-6 (Version None)
Quarter: 2009Q1

REPORT INFORMATION
  Report Type: 
  Country: None (occurrence: None)
  Receive Date: 20090319
  Receipt Date: 20090317
  Transmission Date: 20090719
  Serious: Yes (Hospitalization)
  Sender: FDA-Public Use
  Company Number: US-BRISTOL-MYERS SQUIBB COMPANY-14547905

PATIENT
  Age: 74 Year
  Sex: Female
  Weight: 58 kg

DRUGS (2)
  1. COUMADIN [Suspect]
     Indication: AORTIC VALVE REPLACEMENT
     Dates: start: 20060601
  2. LANOXIN [Concomitant]

REACTIONS (4)
  - INTERNATIONAL NORMALISED RATIO FLUCTUATION [None]
  - PRURITUS [None]
  - RASH [None]
  - RETINAL VASCULAR THROMBOSIS [None]
